FAERS Safety Report 6575930-5 (Version None)
Quarter: 2010Q1

REPORT INFORMATION
  Report Type: 
  Country: None (occurrence: None)
  Receive Date: 20100209
  Receipt Date: 20100202
  Transmission Date: 20100710
  Serious: Yes (Death, Hospitalization)
  Sender: FDA-Public Use
  Company Number: US-ROCHE-684023

PATIENT
  Sex: Female

DRUGS (2)
  1. BEVACIZUMAB [Suspect]
     Indication: DRUG USE FOR UNKNOWN INDICATION
     Dosage: FREQUENCY: OVER 90-30 MINUTES ON DAY 1 AND 15
     Route: 042
     Dates: start: 20100106
  2. AZD 2171 [Suspect]
     Indication: DRUG USE FOR UNKNOWN INDICATION
     Dosage: FREQUENCY: QD ON DAY 1 AND 21
     Route: 048
     Dates: start: 20100106

REACTIONS (3)
  - DYSPNOEA [None]
  - MUSCULOSKELETAL CHEST PAIN [None]
  - RESPIRATORY TRACT HAEMORRHAGE [None]
